FAERS Safety Report 5872811-7 (Version None)
Quarter: 2008Q3

REPORT INFORMATION
  Report Type: 
  Country: None (occurrence: None)
  Receive Date: 20080905
  Receipt Date: 20080826
  Transmission Date: 20090109
  Serious: Yes (Hospitalization)
  Sender: FDA-Public Use
  Company Number: US-ABBOTT-08P-163-0472514-00

PATIENT
  Age: 59 Year
  Sex: Female

DRUGS (2)
  1. HUMIRA [Suspect]
     Indication: CROHN'S DISEASE
     Dosage: 160MG LOADING DOSE
     Route: 058
     Dates: start: 20080818
  2. TPN [Concomitant]
     Indication: MALNUTRITION
     Route: 042

REACTIONS (5)
  - HEART RATE INCREASED [None]
  - HYPOTENSION [None]
  - ILEUS [None]
  - LUNG DISORDER [None]
  - PYREXIA [None]
